FAERS Safety Report 6446819-7 (Version None)
Quarter: 2009Q4

REPORT INFORMATION
  Report Type: 
  Country: None (occurrence: None)
  Receive Date: 20091119
  Receipt Date: 20091111
  Transmission Date: 20100525
  Serious: Yes (Hospitalization, Disabling, Other)
  Sender: FDA-Public Use
  Company Number: PHHO2007DE12430

PATIENT
  Sex: Female
  Weight: 116 kg

DRUGS (4)
  1. ZOLEDRONATE T29581+SOLINJ+BM [Suspect]
     Indication: BREAST CANCER
     Dosage: 4MG
     Route: 042
     Dates: start: 20061011
  2. ZOLEDRONATE T29581+SOLINJ+BM [Suspect]
     Dosage: 4 MG
     Route: 042
     Dates: start: 20071030
  3. VITAMIN D [Concomitant]
  4. CALCIUM [Concomitant]

REACTIONS (3)
  - METASTASES TO SPINE [None]
  - SPINAL OPERATION [None]
  - SPINAL OSTEOARTHRITIS [None]
